FAERS Safety Report 15467836 (Version 1)
Quarter: 2018Q4

REPORT INFORMATION
  Report Type: Spontaneous
  Country: US (occurrence: US)
  Receive Date: 20181005
  Receipt Date: 20181005
  Transmission Date: 20190204
  Serious: No
  Sender: FDA-Public Use
  Company Number: US-009507513-1809USA013759

PATIENT
  Sex: Male
  Weight: 87.98 kg

DRUGS (1)
  1. CLOTRIMAZOLE (+) BETAMETHASONE DIPROPIONATE [Suspect]
     Active Substance: BETAMETHASONE DIPROPIONATE\CLOTRIMAZOLE
     Indication: TINEA PEDIS
     Dosage: UNK, APPLY IN BETWEEN TOES DOSE
     Route: 061
     Dates: start: 201809

REACTIONS (1)
  - Product use in unapproved indication [Unknown]
